FAERS Safety Report 4896602-9 (Version None)
Quarter: 2006Q1

REPORT INFORMATION
  Report Type: 
  Country: None (occurrence: None)
  Receive Date: 20060131
  Receipt Date: 20060119
  Transmission Date: 20060701
  Serious: Yes (Other)
  Sender: FDA-Public Use
  Company Number: US-AMGEN-KDL161095

PATIENT
  Sex: Female

DRUGS (6)
  1. PROCRIT [Suspect]
     Indication: ANAEMIA OF MALIGNANT DISEASE
     Route: 058
     Dates: start: 20050516, end: 20051202
  2. ARANESP [Suspect]
     Indication: ANAEMIA OF MALIGNANT DISEASE
     Route: 058
     Dates: start: 20041115, end: 20050502
  3. FOLIC ACID [Interacting]
     Route: 048
  4. COUMADIN [Concomitant]
     Route: 048
  5. NEURONTIN [Concomitant]
     Route: 048
  6. PREDNISONE [Concomitant]

REACTIONS (2)
  - APLASIA PURE RED CELL [None]
  - DRUG INEFFECTIVE [None]
